FAERS Safety Report 16300465 (Version 2)
Quarter: 2019Q2

REPORT INFORMATION
  Report Type: Spontaneous
  Country: US (occurrence: US)
  Receive Date: 20190510
  Receipt Date: 20190620
  Transmission Date: 20190711
  Serious: Yes (Hospitalization, Other)
  Sender: FDA-Public Use
  Company Number: US-PFIZER INC-2019197963

PATIENT
  Age: 55 Year
  Sex: Female
  Weight: 98.43 kg

DRUGS (2)
  1. METHOTREXATE SODIUM. [Suspect]
     Active Substance: METHOTREXATE SODIUM
     Indication: RHEUMATOID ARTHRITIS
     Dosage: 8ML/20MG INJECTION, WEEKLY
     Route: 030
     Dates: end: 20190406
  2. METHOTREXATE SODIUM. [Suspect]
     Active Substance: METHOTREXATE SODIUM
     Indication: SJOGREN^S SYNDROME

REACTIONS (13)
  - Dizziness [Recovering/Resolving]
  - Balance disorder [Recovering/Resolving]
  - Blood creatine phosphokinase MB increased [Unknown]
  - Restless legs syndrome [Recovered/Resolved with Sequelae]
  - Arthralgia [Not Recovered/Not Resolved]
  - Cerebral disorder [Not Recovered/Not Resolved]
  - Amnesia [Recovered/Resolved with Sequelae]
  - Lyme disease [Unknown]
  - Gait disturbance [Recovering/Resolving]
  - Fall [Recovered/Resolved with Sequelae]
  - Loss of consciousness [Recovered/Resolved with Sequelae]
  - Dysarthria [Unknown]
  - Incontinence [Recovered/Resolved with Sequelae]

NARRATIVE: CASE EVENT DATE: 20190411
